FAERS Safety Report 5682715-0 (Version None)
Quarter: 2008Q1

REPORT INFORMATION
  Report Type: 
  Country: None (occurrence: None)
  Receive Date: 20080327
  Receipt Date: 20080317
  Transmission Date: 20080703
  Serious: Yes (Other)
  Sender: FDA-Public Use
  Company Number: GR-JNJFOC-20080304303

PATIENT
  Age: 78 Year
  Sex: Female

DRUGS (1)
  1. REMICADE [Suspect]
     Indication: RHEUMATOID ARTHRITIS
     Dosage: DURATION FOR MORE THAN 18 MONTHS
     Route: 042

REACTIONS (2)
  - ANAEMIA [None]
  - TUBERCULOSIS GASTROINTESTINAL [None]
